FAERS Safety Report 18587465 (Version 1)
Quarter: 2020Q4

REPORT INFORMATION
  Report Type: Report from Study
  Country: US (occurrence: US)
  Receive Date: 20201207
  Receipt Date: 20201207
  Transmission Date: 20210114
  Serious: Yes (Hospitalization)
  Sender: FDA-Public Use
  Company Number: US-REGENERON PHARMACEUTICALS, INC.-2020-83246

PATIENT

DRUGS (7)
  1. LACOSAMIDE. [Concomitant]
     Active Substance: LACOSAMIDE
     Indication: SEIZURE
     Dosage: 100 MG, BID
     Route: 048
     Dates: start: 20190912
  2. CEMIPLIMAB [Suspect]
     Active Substance: CEMIPLIMAB
     Indication: GLIOBLASTOMA
     Dosage: 350 MG, 1 IN 1 D
     Route: 042
     Dates: start: 20191227, end: 20200825
  3. AD-RTS-HIL-12 [Suspect]
     Active Substance: INVESTIGATIONAL PRODUCT
     Indication: GLIOBLASTOMA
     Dosage: 2.0X10^11, LEFT FRONTAL  (0.1 ML, 2.0X10^11)
     Route: 036
     Dates: start: 20191231, end: 20191231
  4. MARIJUANA [Concomitant]
     Active Substance: CANNABIS SATIVA SUBSP. INDICA TOP
     Indication: DECREASED APPETITE
     Dosage: 886 MG, AS NECESSARY
     Route: 048
     Dates: start: 20200205
  5. VELEDIMEX [Suspect]
     Active Substance: VELEDIMEX
     Indication: GLIOBLASTOMA
     Dosage: 20 MG, 1 IN 1 D
     Route: 048
     Dates: start: 20191231, end: 20200113
  6. LAMOTRIGINE. [Concomitant]
     Active Substance: LAMOTRIGINE
     Indication: SEIZURE
     Dosage: 200 MG, BID
     Route: 048
     Dates: start: 2009
  7. LEXAPRO [Concomitant]
     Active Substance: ESCITALOPRAM OXALATE
     Indication: IRRITABILITY
     Dosage: 15 MG, EVERY BEDTIME
     Route: 048
     Dates: start: 20200520

REACTIONS (1)
  - Enterocolitis [Not Recovered/Not Resolved]

NARRATIVE: CASE EVENT DATE: 20201001
